FAERS Safety Report 9140238 (Version 1)
Quarter: 2013Q1

REPORT INFORMATION
  Report Type: Spontaneous
  Country: US (occurrence: US)
  Receive Date: 20130305
  Receipt Date: 20130305
  Transmission Date: 20140127
  Serious: No
  Sender: FDA-Public Use
  Company Number: US-009507513-1302USA012879

PATIENT
  Age: 70 Year
  Sex: Female

DRUGS (2)
  1. NASONEX [Suspect]
     Indication: ALLERGIC SINUSITIS
     Dosage: UNK
     Dates: start: 20130221, end: 20130224
  2. Z-PAK [Concomitant]

REACTIONS (1)
  - Epistaxis [Recovered/Resolved]
